FAERS Safety Report 5316459-1 (Version None)
Quarter: 2007Q2

REPORT INFORMATION
  Report Type: 
  Country: None (occurrence: None)
  Receive Date: 20070504
  Receipt Date: 20070501
  Transmission Date: 20071010
  Serious: Yes (Life-Threatening, Hospitalization, Other)
  Sender: FDA-Public Use
  Company Number: PHFR2007GB01489

PATIENT
  Age: 80 Year
  Sex: Female
  Weight: 87.99 kg

DRUGS (7)
  1. AMOXICILLIN [Concomitant]
     Indication: PHARYNGOLARYNGEAL PAIN
     Dosage: 250 MG, TID
     Route: 065
     Dates: start: 20070112, end: 20070119
  2. BENDROFLUMETHIAZIDE [Concomitant]
     Indication: HYPERTENSION
     Dosage: 2.5 MG, QD
     Route: 048
  3. CEPHALEXIN [Concomitant]
     Indication: BRONCHITIS
     Dosage: 500 MG, TID
     Route: 065
     Dates: start: 20070214, end: 20070221
  4. ERYTHROMYCIN [Concomitant]
     Indication: LOWER RESPIRATORY TRACT INFECTION
     Route: 048
     Dates: start: 20070223, end: 20070302
  5. PARACETAMOL [Concomitant]
     Indication: ARTHRALGIA
     Dosage: 500 MG, PRN
     Route: 048
  6. RAMIPRIL [Concomitant]
     Indication: HYPERTENSION
     Dosage: 10 MG, QD
     Route: 048
  7. FAMCICLOVIR [Suspect]
     Indication: HERPES ZOSTER
     Dosage: 1 DF, QD
     Route: 048
     Dates: start: 20070416, end: 20070416

REACTIONS (1)
  - BLOOD PRESSURE DECREASED [None]
